FAERS Safety Report 8809689 (Version 1)
Quarter: 2012Q4

REPORT INFORMATION
  Report Type: 
  Country: US (occurrence: US)
  Receive Date: 20120926
  Receipt Date: 20120926
  Transmission Date: 20130627
  Serious: Yes (Other)
  Sender: FDA-Public Use
  Company Number: US-ROCHE-1126948

PATIENT
  Sex: Female

DRUGS (7)
  1. AVASTIN [Suspect]
     Indication: COLON CANCER
     Route: 065
  2. AVASTIN [Suspect]
     Route: 065
  3. FOLINIC ACID [Suspect]
     Indication: COLON CANCER
  4. 5-FU [Suspect]
     Indication: COLON CANCER
  5. OXALIPLATIN [Suspect]
     Indication: COLON CANCER
  6. PANITUMUMAB [Suspect]
     Indication: COLON CANCER
  7. LEUCOVORIN [Suspect]
     Indication: PRODUCT USED FOR UNKNOWN INDICATION

REACTIONS (5)
  - Metastases to lung [Unknown]
  - Neuropathy peripheral [Unknown]
  - Rash [Unknown]
  - Disease progression [Unknown]
  - Hypertension [Unknown]
